FAERS Safety Report 8262984-3 (Version None)
Quarter: 2012Q2

REPORT INFORMATION
  Report Type: 
  Country: None (occurrence: None)
  Receive Date: 20120405
  Receipt Date: 20120328
  Transmission Date: 20120825
  Serious: Yes (Other)
  Sender: FDA-Public Use
  Company Number: DE-MERCK-1203DEU00148

PATIENT
  Age: 25 Year
  Sex: Female

DRUGS (1)
  1. PROPECIA [Suspect]
     Route: 065

REACTIONS (3)
  - EXPOSURE VIA SEMEN [None]
  - PREMATURE LABOUR [None]
  - ABORTION SPONTANEOUS [None]
